FAERS Safety Report 16159235 (Version 1)
Quarter: 2019Q2

REPORT INFORMATION
  Report Type: Spontaneous
  Country: US (occurrence: US)
  Receive Date: 20190404
  Receipt Date: 20190404
  Transmission Date: 20190711
  Serious: Yes (Other)
  Sender: FDA-Public Use
  Company Number: US-PFIZER INC-2018118264

PATIENT
  Age: 19 Year
  Sex: Male

DRUGS (4)
  1. GENOTROPIN [Suspect]
     Active Substance: SOMATROPIN
     Indication: BODY HEIGHT BELOW NORMAL
     Dosage: 0.6 MG, INJECTION ON HIS BELLY, ONCE A DAY
     Dates: start: 201004
  2. GENOTROPIN [Suspect]
     Active Substance: SOMATROPIN
     Indication: CHORDOMA
     Dosage: 0.6 MG, DAILY
  3. L-THYROXINE [Concomitant]
     Active Substance: LEVOTHYROXINE
     Indication: THYROID DISORDER
     Dosage: 88 UG, 1X/DAY
     Route: 048
  4. GENOTROPIN [Suspect]
     Active Substance: SOMATROPIN
     Indication: TUBEROUS SCLEROSIS COMPLEX

REACTIONS (2)
  - Chordoma [Unknown]
  - Expired device used [Unknown]
